FAERS Safety Report 8304067 (Version 2)
Quarter: 2013Q4

REPORT INFORMATION
  Report Type: Spontaneous
  Country: US (occurrence: US)
  Receive Date: 20111221
  Receipt Date: 20131226
  Transmission Date: 20140711
  Serious: Yes (Other)
  Sender: FDA-Public Use
  Company Number: US-BAYER-2011-119605

PATIENT
  Age: 27 Year
  Sex: Female

DRUGS (3)
  1. YAZ [Suspect]
     Dosage: UNK
     Dates: start: 200711, end: 200910
  2. PRILOSEC [Concomitant]
     Indication: GASTROOESOPHAGEAL REFLUX DISEASE
     Dosage: 40 MG, UNK
     Route: 048
     Dates: start: 20091023, end: 20091029
  3. BIOTIN [Concomitant]
     Dosage: UNK
     Route: 048
     Dates: start: 20090801, end: 20091105

REACTIONS (8)
  - Gallbladder disorder [None]
  - Cholecystitis chronic [None]
  - Pain [None]
  - Injury [None]
  - Post cholecystectomy syndrome [None]
  - Gastrointestinal disorder [None]
  - Anxiety [None]
  - Anhedonia [None]
